FAERS Safety Report 23469112 (Version 6)
Quarter: 2024Q1

REPORT INFORMATION
  Report Type: Report from Study
  Country: US (occurrence: US)
  Receive Date: 20240202
  Receipt Date: 20240307
  Transmission Date: 20240409
  Serious: Yes (Other)
  Sender: FDA-Public Use
  Company Number: US-GLAXOSMITHKLINE-US2024AMR012478

PATIENT

DRUGS (5)
  1. NIRAPARIB [Suspect]
     Active Substance: NIRAPARIB
     Indication: Ovarian cancer
     Dosage: 300 MG, BID (300 MG IN THE MORNING)
     Dates: start: 20150107
  2. NIRAPARIB [Suspect]
     Active Substance: NIRAPARIB
     Indication: Menopause
     Dosage: 200 MG, QD
     Dates: start: 20230208
  3. NIRAPARIB [Suspect]
     Active Substance: NIRAPARIB
     Dosage: 200 MG, QD
     Dates: start: 20240121, end: 20240220
  4. ATORVASTATIN [Concomitant]
     Active Substance: ATORVASTATIN
     Indication: Product used for unknown indication
     Dosage: 20 MG, QD ()
  5. LOSARTAN [Concomitant]
     Active Substance: LOSARTAN
     Indication: Product used for unknown indication
     Dosage: 50 MG, QD
     Dates: start: 20230530

REACTIONS (18)
  - Diverticulitis [Recovered/Resolved]
  - Dyspnoea [Unknown]
  - Anxiety [Unknown]
  - Sinus congestion [Unknown]
  - Panic attack [Recovered/Resolved]
  - Dizziness [Unknown]
  - Fatigue [Unknown]
  - Nasopharyngitis [Unknown]
  - Red blood cell count decreased [Unknown]
  - Alanine aminotransferase increased [Unknown]
  - Platelet count decreased [Not Recovered/Not Resolved]
  - Haemoglobin decreased [Unknown]
  - Haematocrit decreased [Unknown]
  - Aspartate aminotransferase increased [Unknown]
  - White blood cell count decreased [Unknown]
  - Extra dose administered [Unknown]
  - Product dose omission issue [Unknown]
  - Product use in unapproved indication [Unknown]

NARRATIVE: CASE EVENT DATE: 20150107
